FAERS Safety Report 4606407-1 (Version None)
Quarter: 2005Q2

REPORT INFORMATION
  Report Type: 
  Country: None (occurrence: None)
  Receive Date: 20050303
  Receipt Date: 20041206
  Transmission Date: 20051028
  Serious: No
  Sender: FDA-Public Use
  Company Number: 200420666BWH

PATIENT
  Age: 59 Year
  Sex: Male

DRUGS (1)
  1. LEVITRA [Suspect]
     Dosage: 20 MG, PRN, ORAL;  10 MG, PRN, ORAL
     Route: 048

REACTIONS (1)
  - EJACULATION DISORDER [None]
